FAERS Safety Report 18256144 (Version 4)
Quarter: 2022Q4

REPORT INFORMATION
  Report Type: Spontaneous
  Country: CO (occurrence: CO)
  Receive Date: 20200911
  Receipt Date: 20221109
  Transmission Date: 20230113
  Serious: Yes (Hospitalization, Other)
  Sender: FDA-Public Use
  Company Number: CO-PFIZER INC-2020349164

PATIENT
  Age: 57 Year
  Sex: Female

DRUGS (5)
  1. ENBREL [Suspect]
     Active Substance: ETANERCEPT
     Indication: Psoriasis
     Dosage: 50 MG, WEEKLY (ON MONDAYS)
     Route: 058
     Dates: start: 201908, end: 202008
  2. ENBREL [Suspect]
     Active Substance: ETANERCEPT
     Dosage: 50 MG, EVERY 15 DAYS
     Route: 058
     Dates: start: 2022
  3. SITAGLIPTIN [Suspect]
     Active Substance: SITAGLIPTIN
     Indication: Product used for unknown indication
     Dosage: UNK
     Route: 065
  4. METFORMIN [Concomitant]
     Active Substance: METFORMIN HYDROCHLORIDE
     Indication: Type 2 diabetes mellitus
     Dosage: UNK
  5. LOSARTAN [Concomitant]
     Active Substance: LOSARTAN
     Indication: Hypertension
     Dosage: UNK

REACTIONS (17)
  - Back pain [Not Recovered/Not Resolved]
  - Cough [Unknown]
  - Blood glucose abnormal [Unknown]
  - Temperature intolerance [Not Recovered/Not Resolved]
  - Tachycardia [Recovered/Resolved]
  - Dizziness [Recovered/Resolved]
  - Low density lipoprotein increased [Unknown]
  - Pain in extremity [Not Recovered/Not Resolved]
  - Nasal congestion [Unknown]
  - Sensitivity to weather change [Unknown]
  - Cardiac disorder [Unknown]
  - Blister [Recovered/Resolved with Sequelae]
  - Intentional product misuse [Unknown]
  - Fatigue [Not Recovered/Not Resolved]
  - COVID-19 pneumonia [Recovered/Resolved with Sequelae]
  - Chest pain [Unknown]
  - Headache [Unknown]

NARRATIVE: CASE EVENT DATE: 20150101
